FAERS Safety Report 11219642 (Version 1)
Quarter: 2015Q2

REPORT INFORMATION
  Report Type: Spontaneous
  Country: US (occurrence: US)
  Receive Date: 20150625
  Receipt Date: 20150625
  Transmission Date: 20150821
  Serious: Yes (Other)
  Sender: FDA-Public Use
  Company Number: US-BANPHARM-20154027

PATIENT
  Age: 77 Year
  Sex: Male

DRUGS (1)
  1. BEXAROTENE UNKNOWN PRODUCT [Suspect]
     Active Substance: BEXAROTENE
     Dosage: LOW DOSE,

REACTIONS (1)
  - Neutropenia [Unknown]
